FAERS Safety Report 16403197 (Version 1)
Quarter: 2019Q2

REPORT INFORMATION
  Report Type: Spontaneous
  Country: CO (occurrence: CO)
  Receive Date: 20190607
  Receipt Date: 20190607
  Transmission Date: 20190711
  Serious: Yes (Other)
  Sender: FDA-Public Use
  Company Number: CO-AMGEN-COLSP2018139517

PATIENT
  Age: 58 Year
  Sex: Female

DRUGS (2)
  1. ENBREL [Suspect]
     Active Substance: ETANERCEPT
     Indication: RHEUMATOID ARTHRITIS
     Dosage: 50 MILLIGRAM, QWK
     Route: 058
     Dates: start: 2017
  2. ENBREL [Suspect]
     Active Substance: ETANERCEPT
     Dosage: 50 MILLIGRAM, EVERY 10 DAYS
     Route: 058

REACTIONS (7)
  - Immunosuppression [Unknown]
  - Contraindicated product administered [Unknown]
  - Off label use [Unknown]
  - Influenza [Unknown]
  - Bronchitis [Recovered/Resolved]
  - Urinary tract infection [Unknown]
  - Eye infection [Recovered/Resolved]
